FAERS Safety Report 24104369 (Version 1)
Quarter: 2024Q3

REPORT INFORMATION
  Report Type: Spontaneous
  Country: PT (occurrence: PT)
  Receive Date: 20240717
  Receipt Date: 20240717
  Transmission Date: 20241016
  Serious: Yes (Life-Threatening, Hospitalization, Other)
  Sender: HIKMA
  Company Number: PT-MLMSERVICE-20240626-PI112609-00057-1

PATIENT

DRUGS (17)
  1. AMLODIPINE [Concomitant]
     Active Substance: AMLODIPINE BESYLATE
     Indication: Product used for unknown indication
     Dosage: 5 MILLIGRAM, QD
     Route: 065
  2. ASPIRIN [Concomitant]
     Active Substance: ASPIRIN
     Indication: Product used for unknown indication
     Dosage: 100 MILLIGRAM, QD
     Route: 065
  3. CANDESARTAN [Concomitant]
     Active Substance: CANDESARTAN
     Indication: Product used for unknown indication
     Dosage: 8 MILLIGRAM, QD
     Route: 065
  4. LEVOTHYROXINE [Concomitant]
     Active Substance: LEVOTHYROXINE\LEVOTHYROXINE SODIUM
     Indication: Product used for unknown indication
     Dosage: 0.137 MILLIGRAM
     Route: 065
  5. LIRAGLUTIDE [Concomitant]
     Active Substance: LIRAGLUTIDE
     Indication: Product used for unknown indication
     Dosage: 0.6 MILLIGRAM, QD
     Route: 065
  6. METFORMIN [Concomitant]
     Active Substance: METFORMIN HYDROCHLORIDE
     Indication: Product used for unknown indication
     Dosage: 700 MILLIGRAM, QD
     Route: 065
  7. METFORMIN [Concomitant]
     Active Substance: METFORMIN HYDROCHLORIDE
     Indication: Weight decreased
     Dosage: UNKNOWN
     Route: 048
  8. ATORVASTATIN [Interacting]
     Active Substance: ATORVASTATIN
     Indication: Product used for unknown indication
     Dosage: 40 MILLIGRAM, QD
     Route: 065
  9. BUPROPION [Interacting]
     Active Substance: BUPROPION
     Indication: Weight decreased
     Dosage: UNK
     Route: 048
  10. HERBALS [Interacting]
     Active Substance: HERBALS
     Indication: Weight decreased
     Dosage: UNKNOWN
     Route: 048
  11. CHLORDIAZEPOXIDE [Interacting]
     Active Substance: CHLORDIAZEPOXIDE
     Indication: Weight decreased
     Dosage: UNKNOWN
     Route: 048
  12. HERBALS [Interacting]
     Active Substance: HERBALS
     Indication: Weight decreased
     Dosage: UNKNOWN
     Route: 048
  13. FUROSEMIDE [Interacting]
     Active Substance: FUROSEMIDE
     Indication: Weight decreased
     Dosage: UNKNOWN
     Route: 048
  14. LORAZEPAM [Interacting]
     Active Substance: LORAZEPAM
     Indication: Product used for unknown indication
     Dosage: 2.5 MILLIGRAM, QD
     Route: 065
  15. PHENOLPHTHALEIN [Interacting]
     Active Substance: PHENOLPHTHALEIN
     Indication: Weight decreased
     Dosage: UNKNOWN
     Route: 048
  16. QUETIAPINE [Interacting]
     Active Substance: QUETIAPINE
     Indication: Product used for unknown indication
     Dosage: 100 MILLIGRAM, QD
     Route: 065
  17. TRAZODONE [Interacting]
     Active Substance: TRAZODONE HYDROCHLORIDE
     Indication: Product used for unknown indication
     Dosage: 300 MILLIGRAM, QD
     Route: 065

REACTIONS (5)
  - Rhabdomyolysis [Recovering/Resolving]
  - Encephalopathy [Recovered/Resolved]
  - Acute kidney injury [Recovering/Resolving]
  - Hypovolaemia [Recovered/Resolved]
  - Drug interaction [Recovered/Resolved]
